FAERS Safety Report 4738285-4 (Version None)
Quarter: 2005Q3

REPORT INFORMATION
  Report Type: 
  Country: None (occurrence: None)
  Receive Date: 20050803
  Receipt Date: 20050722
  Transmission Date: 20060218
  Serious: Yes (Other)
  Sender: FDA-Public Use
  Company Number: HQWYE953201JUL05

PATIENT
  Age: 60 Year
  Sex: Female

DRUGS (1)
  1. MINOCYCLINE HCL [Suspect]
     Indication: INFECTION PROPHYLAXIS
     Dosage: 100 MG PER DAY, ORAL
     Route: 048
     Dates: start: 20040914, end: 20040914

REACTIONS (5)
  - BLISTER [None]
  - HYPOTENSION [None]
  - PYREXIA [None]
  - TOXIC EPIDERMAL NECROLYSIS [None]
  - URINARY TRACT INFECTION [None]
